FAERS Safety Report 6349800-1 (Version None)
Quarter: 2009Q3

REPORT INFORMATION
  Report Type: 
  Country: None (occurrence: None)
  Receive Date: 20090911
  Receipt Date: 20090908
  Transmission Date: 20100115
  Serious: Yes (Life-Threatening, Hospitalization, Disabling)
  Sender: FDA-Public Use
  Company Number: US-MERCK-0909USA00055

PATIENT
  Age: 40 Year
  Sex: Female

DRUGS (4)
  1. ISENTRESS [Suspect]
     Indication: ANTIRETROVIRAL THERAPY
     Route: 048
     Dates: start: 20090301
  2. ISENTRESS [Suspect]
     Route: 048
     Dates: end: 20090831
  3. TRUVADA [Concomitant]
     Indication: RETROVIRAL INFECTION
     Route: 065
     Dates: start: 20090301, end: 20090709
  4. BACTRIM [Concomitant]
     Route: 065

REACTIONS (5)
  - COUGH [None]
  - DRUG ERUPTION [None]
  - HEPATIC ENZYME INCREASED [None]
  - OEDEMA PERIPHERAL [None]
  - STEVENS-JOHNSON SYNDROME [None]
